FAERS Safety Report 6761780-3 (Version None)
Quarter: 2010Q2

REPORT INFORMATION
  Report Type: 
  Country: None (occurrence: None)
  Receive Date: 20100609
  Receipt Date: 20100603
  Transmission Date: 20101027
  Serious: Yes (Death, Other)
  Sender: FDA-Public Use
  Company Number: US-CELGENEUS-163-CCAZA-10020750

PATIENT
  Age: 83 Year
  Sex: Male
  Weight: 83.6 kg

DRUGS (5)
  1. AZACITIDINE [Suspect]
     Route: 058
     Dates: start: 20091214, end: 20100115
  2. PXD 101 [Suspect]
     Route: 051
     Dates: start: 20091214, end: 20100115
  3. ALLOPURINOL [Concomitant]
     Indication: DRUG USE FOR UNKNOWN INDICATION
     Route: 065
  4. PROCHLORPERAZINE [Concomitant]
     Indication: DRUG USE FOR UNKNOWN INDICATION
     Route: 065
  5. RAMIPRIL/HYDROCHLOROTHIAZIDE [Concomitant]
     Indication: DRUG USE FOR UNKNOWN INDICATION
     Route: 065

REACTIONS (3)
  - HAEMOGLOBIN DECREASED [None]
  - STAPHYLOCOCCAL BACTERAEMIA [None]
  - SUDDEN DEATH [None]
